FAERS Safety Report 10702967 (Version 2)
Quarter: 2015Q1

REPORT INFORMATION
  Report Type: Spontaneous
  Country: US (occurrence: US)
  Receive Date: 20150110
  Receipt Date: 20150110
  Transmission Date: 20150721
  Serious: Yes (Hospitalization, Other)
  Sender: FDA-Public Use
  Company Number: US-CUBIST PHARMACEUTICALS, INC.-2014CBST001483

PATIENT

DRUGS (24)
  1. CUBICIN [Suspect]
     Active Substance: DAPTOMYCIN
     Dosage: 500 MG, Q24H
     Route: 042
     Dates: start: 20140912, end: 20140923
  2. ZOSYN [Concomitant]
     Active Substance: PIPERACILLIN SODIUM\TAZOBACTAM SODIUM
     Indication: DIABETIC FOOT INFECTION
     Dosage: UNK UNK, UNK
     Route: 042
     Dates: start: 20140820, end: 20140826
  3. INVANZ [Concomitant]
     Active Substance: ERTAPENEM SODIUM
     Indication: GANGRENE
  4. ZYVOX [Concomitant]
     Active Substance: LINEZOLID
     Indication: DIABETIC FOOT INFECTION
     Dosage: UNK UNK, UNK
     Route: 042
     Dates: start: 20140820, end: 20140825
  5. ZYVOX [Concomitant]
     Active Substance: LINEZOLID
     Indication: CELLULITIS
  6. CUBICIN [Suspect]
     Active Substance: DAPTOMYCIN
     Indication: OFF LABEL USE
     Dosage: 5.15 MG/KG, Q24H
     Route: 042
     Dates: start: 20140912, end: 20140923
  7. ZOSYN [Concomitant]
     Active Substance: PIPERACILLIN SODIUM\TAZOBACTAM SODIUM
     Indication: CELLULITIS
  8. MIRALAX [Concomitant]
     Active Substance: POLYETHYLENE GLYCOL 3350
     Indication: PRODUCT USED FOR UNKNOWN INDICATION
     Dosage: 17 G, QD
     Route: 048
  9. CYANOCOBALAMIN. [Concomitant]
     Active Substance: CYANOCOBALAMIN
     Indication: PRODUCT USED FOR UNKNOWN INDICATION
     Dosage: 1 TABLET, QD
     Route: 048
  10. SIMVASTATIN. [Concomitant]
     Active Substance: SIMVASTATIN
     Indication: PRODUCT USED FOR UNKNOWN INDICATION
     Dosage: UNK, UNK, UNK
     Route: 065
  11. CHOLECALCIFEROL [Concomitant]
     Active Substance: CHOLECALCIFEROL
     Indication: PRODUCT USED FOR UNKNOWN INDICATION
     Dosage: 2 TABLET, QD
     Route: 048
  12. CUBICIN [Suspect]
     Active Substance: DAPTOMYCIN
     Indication: GANGRENE
     Dosage: 675 MG, Q24H
     Route: 042
     Dates: start: 20140826, end: 20140910
  13. OXYCODONE [Concomitant]
     Active Substance: OXYCODONE
     Indication: PAIN
     Dosage: 1-2 TABS, Q4H PRN
     Route: 048
  14. METRONIDAZOLE. [Concomitant]
     Active Substance: METRONIDAZOLE
     Indication: PRODUCT USED FOR UNKNOWN INDICATION
     Dosage: 1 APP, QD
     Route: 061
  15. DOCUSATE [Concomitant]
     Active Substance: DOCUSATE
     Indication: PRODUCT USED FOR UNKNOWN INDICATION
     Dosage: 100 MG, BID
     Route: 048
  16. RIFAMPIN. [Concomitant]
     Active Substance: RIFAMPIN
     Indication: PRODUCT USED FOR UNKNOWN INDICATION
     Dosage: 300 MG 2 CAPS, QD
     Route: 048
     Dates: start: 20140915
  17. CURCUMIN [Concomitant]
     Active Substance: CURCUMIN
     Indication: PRODUCT USED FOR UNKNOWN INDICATION
     Dosage: 1 TABLET, QD
     Route: 048
  18. ERTAPENEM [Concomitant]
     Active Substance: ERTAPENEM
     Indication: PRODUCT USED FOR UNKNOWN INDICATION
     Dosage: 1 G, Q24H
     Route: 042
  19. FERROUS SULFATE [Concomitant]
     Active Substance: FERROUS SULFATE\FERROUS SULFATE, DRIED
     Indication: PRODUCT USED FOR UNKNOWN INDICATION
     Dosage: 1 TABLET, BID
     Route: 048
  20. INSULIN ASPART [Concomitant]
     Active Substance: INSULIN ASPART
     Indication: PRODUCT USED FOR UNKNOWN INDICATION
     Dosage: 2 UT, TID
     Route: 058
  21. CUBICIN [Suspect]
     Active Substance: DAPTOMYCIN
     Indication: CELLULITIS
     Dosage: 6.9 MG/KG, Q24H
     Route: 042
     Dates: start: 20140826, end: 20140910
  22. INVANZ [Concomitant]
     Active Substance: ERTAPENEM SODIUM
     Indication: CELLULITIS
     Dosage: 1 G, Q24H
     Route: 042
     Dates: start: 20140826, end: 20141021
  23. ACETAMINOPHEN. [Concomitant]
     Active Substance: ACETAMINOPHEN
     Indication: PYREXIA
     Dosage: 325 MG, Q6H PRN
     Route: 048
  24. INSULIN GLARGINE [Concomitant]
     Active Substance: INSULIN GLARGINE
     Indication: PRODUCT USED FOR UNKNOWN INDICATION
     Dosage: 22 UT, QD
     Route: 058

REACTIONS (15)
  - Dyspnoea [Unknown]
  - Constipation [Unknown]
  - Decreased appetite [Unknown]
  - Weight increased [Unknown]
  - Pyrexia [None]
  - Foot fracture [Unknown]
  - Upper-airway cough syndrome [Unknown]
  - Blood creatine phosphokinase increased [Recovered/Resolved]
  - Nausea [Unknown]
  - Off label use [Unknown]
  - Haemoglobin decreased [None]
  - Oedema peripheral [Unknown]
  - Night sweats [Unknown]
  - Fatigue [Unknown]
  - Cough [Unknown]
